FAERS Safety Report 18607088 (Version 3)
Quarter: 2020Q4

REPORT INFORMATION
  Report Type: Spontaneous
  Country: US (occurrence: US)
  Receive Date: 20201211
  Receipt Date: 20201217
  Transmission Date: 20210114
  Serious: Yes (Other)
  Sender: FDA-Public Use
  Company Number: US-PFIZER INC-2020487369

PATIENT
  Age: 28 Year
  Sex: Female
  Weight: 58.97 kg

DRUGS (1)
  1. METHYLPREDNISOLONE. [Suspect]
     Active Substance: METHYLPREDNISOLONE
     Indication: SYSTEMIC LUPUS ERYTHEMATOSUS
     Dosage: 20 MG, 1X/DAY
     Route: 048
     Dates: start: 1996

REACTIONS (16)
  - Feeling abnormal [Unknown]
  - Rubber sensitivity [Unknown]
  - Psychotic disorder [Not Recovered/Not Resolved]
  - Photophobia [Unknown]
  - Pyrexia [Unknown]
  - Hydrophobia [Unknown]
  - Diarrhoea [Unknown]
  - Headache [Unknown]
  - White blood cell count increased [Unknown]
  - Delusion [Unknown]
  - Drug interaction [Unknown]
  - Rash [Unknown]
  - Chest pain [Unknown]
  - Vertigo [Unknown]
  - Dyspnoea [Unknown]
  - Vomiting [Unknown]

NARRATIVE: CASE EVENT DATE: 199712
